FAERS Safety Report 13043031 (Version 2)
Quarter: 2017Q1

REPORT INFORMATION
  Report Type: Spontaneous
  Country: None (occurrence: US)
  Receive Date: 20161219
  Receipt Date: 20170120
  Transmission Date: 20170428
  Serious: No
  Sender: FDA-Public Use
  Company Number: US-MATRIXX INITIATIVES, INC.-1061008

PATIENT
  Age: 73 Year
  Sex: Female
  Weight: 60.91 kg

DRUGS (5)
  1. FISH OIL SUPPLEMENT [Concomitant]
     Active Substance: FISH OIL
  2. SIMVASTATIN. [Concomitant]
     Active Substance: SIMVASTATIN
  3. MULTIVITAMINS [Concomitant]
     Active Substance: VITAMINS
  4. LEVOTHYROXINE. [Concomitant]
     Active Substance: LEVOTHYROXINE
  5. ZICAM COLD REMEDY [Suspect]
     Active Substance: HOMEOPATHICS\ZINC ACETATE\ZINC GLUCONATE
     Indication: NASOPHARYNGITIS
     Route: 048
     Dates: start: 20161213, end: 20161218

REACTIONS (1)
  - Ageusia [Recovered/Resolved]
